FAERS Safety Report 5010595-5 (Version None)
Quarter: 2006Q2

REPORT INFORMATION
  Report Type: 
  Country: None (occurrence: None)
  Receive Date: 20060525
  Receipt Date: 20060515
  Transmission Date: 20061013
  Serious: Yes (Hospitalization)
  Sender: FDA-Public Use
  Company Number: FR-ABBOTT-06P-056-0333169-00

PATIENT
  Age: 84 Year
  Sex: Female

DRUGS (5)
  1. LIPANTHYL TABLETS [Suspect]
     Indication: DRUG USE FOR UNKNOWN INDICATION
     Route: 048
     Dates: end: 20060404
  2. WARFARIN SODIUM [Interacting]
     Indication: DRUG USE FOR UNKNOWN INDICATION
     Dates: start: 20060115, end: 20060404
  3. ALLOPURINOL [Interacting]
     Indication: DRUG USE FOR UNKNOWN INDICATION
     Dates: end: 20060404
  4. AMIODARONE HCL [Interacting]
     Indication: DRUG USE FOR UNKNOWN INDICATION
  5. FLECAINIDE ACETATE [Concomitant]
     Indication: DRUG USE FOR UNKNOWN INDICATION

REACTIONS (7)
  - CEREBRAL HAEMORRHAGE [None]
  - DRUG INTERACTION [None]
  - ECCHYMOSIS [None]
  - FALL [None]
  - HAEMATOMA [None]
  - MALAISE [None]
  - PERIORBITAL OEDEMA [None]
